FAERS Safety Report 4478959-6 (Version None)
Quarter: 2004Q4

REPORT INFORMATION
  Report Type: 
  Country: None (occurrence: None)
  Receive Date: 20041015
  Receipt Date: 20041005
  Transmission Date: 20050328
  Serious: Yes (Hospitalization)
  Sender: FDA-Public Use
  Company Number: 8999

PATIENT
  Age: 45 Year
  Sex: Male

DRUGS (7)
  1. LEUCOVORIN [Suspect]
     Indication: RECTAL CANCER
     Dosage: 60 MG; PO
     Route: 048
     Dates: start: 20040529, end: 20040626
  2. LEUCOVORIN [Suspect]
     Indication: RECTAL CANCER
     Dosage: 60 MG; PO
     Route: 048
     Dates: start: 20040702, end: 20040713
  3. LEUCOVORIN [Suspect]
     Indication: RECTAL CANCER
     Dosage: 60 MG; PO
     Route: 048
     Dates: start: 20040623, end: 20040820
  4. UFT [Suspect]
     Indication: RECTAL CANCER
     Dosage: 300MG/400 MG/400 MG , PO
     Route: 048
     Dates: start: 20040529, end: 20040626
  5. UFT [Suspect]
     Indication: RECTAL CANCER
     Dosage: 300MG/400 MG/400 MG , PO
     Route: 048
     Dates: start: 20040702, end: 20040713
  6. UFT [Suspect]
     Indication: RECTAL CANCER
     Dosage: 300MG/400 MG/400 MG , PO
     Route: 048
     Dates: start: 20040723, end: 20040820
  7. MAGNESIUM OXIDE [Concomitant]

REACTIONS (1)
  - DIARRHOEA [None]
